FAERS Safety Report 9054700 (Version 2)
Quarter: 2013Q1

REPORT INFORMATION
  Report Type: Spontaneous
  Country: FR (occurrence: FR)
  Receive Date: 20130208
  Receipt Date: 20130226
  Transmission Date: 20140127
  Serious: Yes (Life-Threatening)
  Sender: FDA-Public Use
  Company Number: FR-JNJFOC-20130200117

PATIENT
  Age: 90 None
  Sex: Female
  Weight: 56.8 kg

DRUGS (12)
  1. DUROGESIC [Suspect]
     Indication: OSTEOSYNTHESIS
     Dosage: INITIATED A LITTLE AFTER DUROGESIC* 25 ?G,??25 ?G/HR+ 12 ?G/HR.
     Route: 062
     Dates: start: 20130115
  2. DUROGESIC [Suspect]
     Indication: FEMORAL NECK FRACTURE
     Dosage: INITIATED A LITTLE AFTER DUROGESIC* 25 ?G,??25 ?G/HR+ 12 ?G/HR.
     Route: 062
     Dates: start: 20130115
  3. DUROGESIC [Suspect]
     Indication: PROCEDURAL PAIN
     Dosage: INITIATED A LITTLE AFTER DUROGESIC* 25 ?G,??25 ?G/HR+ 12 ?G/HR.
     Route: 062
     Dates: start: 20130115
  4. ALPRAZOLAM [Concomitant]
     Indication: PRODUCT USED FOR UNKNOWN INDICATION
     Dosage: 0.5/0.5/1 DOSES IN A DAY
     Route: 048
  5. STERCULIA [Concomitant]
     Indication: PRODUCT USED FOR UNKNOWN INDICATION
     Dosage: RECTAL SOLUTION, AS NECESSARY
     Route: 054
  6. RAMIPRIL [Concomitant]
     Indication: PRODUCT USED FOR UNKNOWN INDICATION
     Route: 048
  7. TRANSIPEG [Concomitant]
     Indication: PRODUCT USED FOR UNKNOWN INDICATION
     Dosage: PEG 3350
     Route: 048
  8. KARDEGIC [Concomitant]
     Indication: TRANSIENT ISCHAEMIC ATTACK
     Route: 048
  9. PANTOPRAZOLE [Concomitant]
     Indication: PRODUCT USED FOR UNKNOWN INDICATION
     Route: 048
  10. AMLOR [Concomitant]
     Indication: PRODUCT USED FOR UNKNOWN INDICATION
     Route: 048
  11. ZOPICLONE [Concomitant]
     Indication: PRODUCT USED FOR UNKNOWN INDICATION
     Route: 048
  12. LOVENOX [Concomitant]
     Indication: PRODUCT USED FOR UNKNOWN INDICATION
     Route: 058

REACTIONS (4)
  - Overdose [Not Recovered/Not Resolved]
  - Somnolence [Unknown]
  - Wrong technique in drug usage process [Recovered/Resolved]
  - Off label use [Unknown]
